FAERS Safety Report 26105297 (Version 1)
Quarter: 2025Q4

REPORT INFORMATION
  Report Type: Spontaneous
  Country: CA (occurrence: CA)
  Receive Date: 20251201
  Receipt Date: 20251201
  Transmission Date: 20260118
  Serious: Yes (Disabling, Other)
  Sender: AUROBINDO
  Company Number: CA-AUROBINDO-AUR-APL-2025-059936

PATIENT
  Age: 50 Year
  Sex: Male
  Weight: 72.574 kg

DRUGS (1)
  1. MIRTAZAPINE [Suspect]
     Active Substance: MIRTAZAPINE
     Indication: Drug rehabilitation
     Dosage: 15.0 MILLIGRAM, ONCE A DAY

REACTIONS (4)
  - Erectile dysfunction [Unknown]
  - Drug dependence [Unknown]
  - Headache [Unknown]
  - Drug ineffective [Unknown]
